FAERS Safety Report 7773553-3 (Version None)
Quarter: 2011Q3

REPORT INFORMATION
  Report Type: 
  Country: None (occurrence: None)
  Receive Date: 20110922
  Receipt Date: 20110921
  Transmission Date: 20111222
  Serious: Yes (Hospitalization)
  Sender: FDA-Public Use
  Company Number: SG-BRISTOL-MYERS SQUIBB COMPANY-15941941

PATIENT
  Age: 69 Year
  Sex: Female
  Weight: 40 kg

DRUGS (6)
  1. CISPLATIN [Suspect]
     Indication: NON-SMALL CELL LUNG CANCER
     Dosage: INTERRUPTED ON 21JUL11(8D) RESTARTED ON 11AUG11
     Route: 065
     Dates: start: 20110714
  2. DEXAMETHASONE [Concomitant]
     Dates: start: 20110714
  3. GEMCITABINE HYDROCHLORIDE [Suspect]
     Indication: NON-SMALL CELL LUNG CANCER
     Dosage: VIAL INTERRUPTED ON 21JUL11(8D) RESTARTED ON 11AUG11
     Route: 065
     Dates: start: 20110714
  4. SPAN-K [Concomitant]
     Dates: start: 20110711
  5. ONDANSETRON HCL [Concomitant]
     Dates: start: 20110714
  6. KETOTOP [Concomitant]
     Dates: start: 20110711

REACTIONS (7)
  - THROMBOCYTOPENIA [None]
  - UPPER GASTROINTESTINAL HAEMORRHAGE [None]
  - DEHYDRATION [None]
  - GASTRIC ULCER [None]
  - DUODENAL ULCER [None]
  - ANAEMIA [None]
  - NEUTROPENIA [None]
